FAERS Safety Report 14176640 (Version 3)
Quarter: 2018Q2

REPORT INFORMATION
  Report Type: Report from Study
  Country: FR (occurrence: FR)
  Receive Date: 20171110
  Receipt Date: 20180504
  Transmission Date: 20180711
  Serious: Yes (Death, Other)
  Sender: FDA-Public Use
  Company Number: FR-BRISTOL-MYERS SQUIBB COMPANY-BMS-2017-098458

PATIENT
  Age: 76 Year
  Sex: Male

DRUGS (2)
  1. SKENAN [Concomitant]
     Active Substance: MORPHINE SULFATE
     Indication: PRODUCT USED FOR UNKNOWN INDICATION
     Dosage: 20 MG, UNK
     Route: 065
  2. NIVOLUMAB [Suspect]
     Active Substance: NIVOLUMAB
     Indication: LUNG NEOPLASM MALIGNANT
     Dosage: 3 MG/KG, Q2WK
     Route: 065
     Dates: start: 20170713, end: 20171005

REACTIONS (5)
  - Malignant neoplasm progression [Fatal]
  - Bronchitis [Recovered/Resolved]
  - Weight decreased [Unknown]
  - Bone pain [Not Recovered/Not Resolved]
  - Acute pulmonary oedema [Fatal]

NARRATIVE: CASE EVENT DATE: 20170831
